FAERS Safety Report 17158254 (Version 1)
Quarter: 2019Q4

REPORT INFORMATION
  Report Type: Spontaneous
  Country: US (occurrence: US)
  Receive Date: 20191216
  Receipt Date: 20191216
  Transmission Date: 20200122
  Serious: No
  Sender: FDA-Public Use
  Company Number: US-PFIZER INC-2019536723

PATIENT
  Age: 75 Year
  Sex: Male

DRUGS (4)
  1. SPIRONOLACTONE. [Concomitant]
     Active Substance: SPIRONOLACTONE
     Dosage: UNK [ONE A HALF TABLET FIVE DAYS A WEEK]
  2. COREG [Concomitant]
     Active Substance: CARVEDILOL
     Indication: HYPERTENSION
     Dosage: 25 MG, 2X/DAY
  3. TOVIAZ [Suspect]
     Active Substance: FESOTERODINE FUMARATE
     Indication: HYPERTONIC BLADDER
     Dosage: 8 MG, 1X/DAY [ONE TIME A DAY USUALLY IN THE MORNING]
  4. LASIX [Concomitant]
     Active Substance: FUROSEMIDE
     Dosage: UNK [FIVE DAYS A WEEK]

REACTIONS (3)
  - Therapeutic product effect incomplete [Unknown]
  - Urinary tract infection [Unknown]
  - Burning sensation [Unknown]
